FAERS Safety Report 25485607 (Version 1)
Quarter: 2025Q2

REPORT INFORMATION
  Report Type: Report from Study
  Country: US (occurrence: US)
  Receive Date: 20250626
  Receipt Date: 20250626
  Transmission Date: 20250716
  Serious: Yes (Hospitalization, Other)
  Sender: NOVARTIS
  Company Number: US-002147023-NVSC2025US099890

PATIENT
  Age: 64 Year
  Sex: Male
  Weight: 84.3 kg

DRUGS (3)
  1. TAFINLAR [Suspect]
     Active Substance: DABRAFENIB MESYLATE
     Indication: Hairy cell leukaemia
     Route: 065
     Dates: start: 20250516
  2. ENCORAFENIB [Suspect]
     Active Substance: ENCORAFENIB
     Indication: Hairy cell leukaemia
     Dosage: 1 DOSAGE FORM, QD
     Route: 048
     Dates: start: 20211004, end: 20250425
  3. BINIMETINIB [Suspect]
     Active Substance: BINIMETINIB
     Indication: Hairy cell leukaemia
     Dosage: 2 DOSAGE FORM, QD
     Route: 048
     Dates: start: 20211004, end: 20250515

REACTIONS (3)
  - Pyrexia [Recovered/Resolved]
  - Chills [Unknown]
  - Off label use [Unknown]

NARRATIVE: CASE EVENT DATE: 20250531
